FAERS Safety Report 5275809-5 (Version None)
Quarter: 2007Q1

REPORT INFORMATION
  Report Type: 
  Country: None (occurrence: None)
  Receive Date: 20070326
  Receipt Date: 20070322
  Transmission Date: 20070707
  Serious: Yes (Hospitalization)
  Sender: FDA-Public Use
  Company Number: FR-GLAXOSMITHKLINE-B0463318A

PATIENT
  Age: 41 Year
  Sex: Female
  Weight: 49 kg

DRUGS (9)
  1. VALACYCLOVIR HCL [Suspect]
     Route: 048
     Dates: start: 20061215, end: 20070204
  2. DIANTALVIC [Suspect]
     Route: 048
     Dates: start: 20040202, end: 20070204
  3. ORACILLINE [Suspect]
     Route: 048
     Dates: start: 20061215, end: 20070205
  4. LARGACTIL [Concomitant]
  5. STILNOX [Concomitant]
  6. LEXOMIL [Concomitant]
  7. SEROPRAM [Concomitant]
  8. INIPOMP [Concomitant]
  9. ACUPAN [Concomitant]

REACTIONS (6)
  - AGRANULOCYTOSIS [None]
  - EOSINOPHIL COUNT INCREASED [None]
  - GENERAL PHYSICAL HEALTH DETERIORATION [None]
  - METASTASES TO MENINGES [None]
  - MONOCYTE COUNT INCREASED [None]
  - WHITE BLOOD CELL COUNT INCREASED [None]
